FAERS Safety Report 7381497-4 (Version None)
Quarter: 2011Q1

REPORT INFORMATION
  Report Type: 
  Country: None (occurrence: None)
  Receive Date: 20110329
  Receipt Date: 20110324
  Transmission Date: 20110831
  Serious: Yes (Hospitalization)
  Sender: FDA-Public Use
  Company Number: DE-MERCK-1103DEU00133

PATIENT
  Age: 74 Year
  Sex: Female

DRUGS (3)
  1. XIPAMIDE [Concomitant]
     Route: 065
  2. JANUMET [Suspect]
     Route: 048
     Dates: start: 20101201, end: 20101201
  3. RAMIPRIL [Concomitant]
     Route: 065

REACTIONS (1)
  - CUTANEOUS LUPUS ERYTHEMATOSUS [None]
